FAERS Safety Report 13436892 (Version 1)
Quarter: 2017Q2

REPORT INFORMATION
  Report Type: Spontaneous
  Country: TR (occurrence: TR)
  Receive Date: 20170412
  Receipt Date: 20170412
  Transmission Date: 20170830
  Serious: Yes (Life-Threatening, Other)
  Sender: FDA-Public Use
  Company Number: TR-MYLANLABS-2017M1022765

PATIENT

DRUGS (6)
  1. VANCOMYCIN [Suspect]
     Active Substance: VANCOMYCIN
     Indication: SEPSIS
     Dosage: 10MG/KG/DOSE THRICE A DAY; 138MG/DOSE
     Route: 042
  2. ADZOPIP [Concomitant]
     Indication: SEPSIS
     Dosage: 50 MG/KG/DOSE TWICE A DAY
     Route: 065
  3. CAFFEINE CITRATE. [Concomitant]
     Active Substance: CAFFEINE CITRATE
     Indication: INFANTILE APNOEA
     Dosage: LOADING DOSE 20MG/KG FOLLOWED BY MAINTENANCE DOSE OF 5MG/KG/DOSE
     Route: 065
  4. VANCOMYCIN [Suspect]
     Active Substance: VANCOMYCIN
     Indication: NECROTISING COLITIS
     Dosage: 10MG/KG/DOSE THRICE A DAY; 138MG/DOSE
     Route: 042
  5. ADZOPIP [Concomitant]
     Indication: NECROTISING COLITIS
     Dosage: 50 MG/KG/DOSE TWICE A DAY
     Route: 065
  6. CAFFEINE CITRATE. [Concomitant]
     Active Substance: CAFFEINE CITRATE
     Dosage: MAINTENANCE DOSE OF 5MG/KG/DOSE
     Route: 065

REACTIONS (2)
  - Accidental overdose [Recovered/Resolved]
  - Infantile apnoea [Recovered/Resolved]
